FAERS Safety Report 5479528-1 (Version None)
Quarter: 2007Q4

REPORT INFORMATION
  Report Type: 
  Country: None (occurrence: None)
  Receive Date: 20071008
  Receipt Date: 20070925
  Transmission Date: 20080405
  Serious: Yes (Life-Threatening, Hospitalization)
  Sender: FDA-Public Use
  Company Number: GB-ROCHE-521917

PATIENT
  Age: 16 Year
  Sex: Male
  Weight: 78.9 kg

DRUGS (1)
  1. ISOTRETINOIN [Suspect]
     Indication: ACNE
     Route: 048
     Dates: start: 20070727, end: 20070813

REACTIONS (4)
  - COAGULOPATHY [None]
  - DEEP VEIN THROMBOSIS [None]
  - HYPERCALCAEMIA [None]
  - PROTEIN DEFICIENCY ANAEMIA [None]
